FAERS Safety Report 21124885 (Version 2)
Quarter: 2022Q3

REPORT INFORMATION
  Report Type: Report from Study
  Country: DE (occurrence: DE)
  Receive Date: 20220725
  Receipt Date: 20220726
  Transmission Date: 20221026
  Serious: Yes (Hospitalization)
  Sender: FDA-Public Use
  Company Number: DE-IPSEN Group, Research and Development-2016-04461

PATIENT
  Age: 8 Year
  Sex: Female
  Weight: 17.8 kg

DRUGS (11)
  1. INCRELEX [Suspect]
     Active Substance: MECASERMIN
     Indication: Severe primary insulin like growth factor-1 deficiency
     Dosage: 0.04 MG/KG = 40 UG/KG
     Route: 065
     Dates: start: 20121010, end: 20121016
  2. INCRELEX [Suspect]
     Active Substance: MECASERMIN
     Dosage: 0.04 MG/KG = 40 UG/KG
     Route: 065
     Dates: start: 20121017, end: 20121030
  3. INCRELEX [Suspect]
     Active Substance: MECASERMIN
     Dosage: 0.06 MG/KG = 60 UG/KG
     Route: 065
     Dates: start: 20121031, end: 20121127
  4. INCRELEX [Suspect]
     Active Substance: MECASERMIN
     Dosage: 0.08 MG/KG = 80 UG/KG
     Route: 065
     Dates: start: 20121128, end: 20130414
  5. INCRELEX [Suspect]
     Active Substance: MECASERMIN
     Dosage: 0.12 MG/KG = 120 UG/KG
     Route: 065
     Dates: start: 20130415, end: 20151026
  6. INCRELEX [Suspect]
     Active Substance: MECASERMIN
     Dosage: 0.11 MG/KG = 110 UG/KG
     Route: 065
     Dates: start: 20151027, end: 20160424
  7. INCRELEX [Suspect]
     Active Substance: MECASERMIN
     Dosage: 0.12 MG/KG = 120 UG/KG
     Route: 065
     Dates: start: 20160425, end: 20160721
  8. INCRELEX [Suspect]
     Active Substance: MECASERMIN
     Dosage: 0.11 MG/KG = 110 UG/KG
     Route: 065
     Dates: start: 20160722, end: 20180423
  9. INCRELEX [Suspect]
     Active Substance: MECASERMIN
     Dosage: 0.1 MG/KG = 100 UG/KG
     Route: 065
     Dates: start: 20180424, end: 20181022
  10. INCRELEX [Suspect]
     Active Substance: MECASERMIN
     Dosage: 0.12 MG/KG = 120 UG/KG
     Route: 065
     Dates: start: 20181023, end: 201905
  11. INCRELEX [Suspect]
     Active Substance: MECASERMIN
     Route: 065
     Dates: start: 201905, end: 201905

REACTIONS (3)
  - Tonsillectomy [Recovered/Resolved]
  - Adenoidectomy [Recovered/Resolved]
  - Sleep apnoea syndrome [Recovered/Resolved]

NARRATIVE: CASE EVENT DATE: 20140414
